FAERS Safety Report 13633198 (Version 1)
Quarter: 2017Q2

REPORT INFORMATION
  Report Type: Spontaneous
  Country: US (occurrence: US)
  Receive Date: 20170531
  Receipt Date: 20170531
  Transmission Date: 20170830
  Serious: No
  Sender: FDA-Public Use
  Company Number: US-ASTELLAS-1517366

PATIENT
  Sex: Male

DRUGS (6)
  1. OXYCODONE ER [Concomitant]
     Active Substance: OXYCODONE
  2. TARCEVA [Suspect]
     Active Substance: ERLOTINIB HYDROCHLORIDE
     Indication: LUNG NEOPLASM MALIGNANT
     Route: 048
     Dates: start: 20141212
  3. ASPIRIN. [Concomitant]
     Active Substance: ASPIRIN
  4. CYMBALTA [Concomitant]
     Active Substance: DULOXETINE HYDROCHLORIDE
  5. DURAGESIC [Concomitant]
     Active Substance: FENTANYL
     Dosage: STRENGTH 100
     Route: 065
  6. LIPITOR [Concomitant]
     Active Substance: ATORVASTATIN CALCIUM

REACTIONS (4)
  - Viral upper respiratory tract infection [Unknown]
  - Pyrexia [Unknown]
  - Dyspnoea [Unknown]
  - Rash [Unknown]
